FAERS Safety Report 6505598-5 (Version None)
Quarter: 2009Q4

REPORT INFORMATION
  Report Type: 
  Country: None (occurrence: None)
  Receive Date: 20091218
  Receipt Date: 20091215
  Transmission Date: 20100525
  Serious: Yes (Hospitalization)
  Sender: FDA-Public Use
  Company Number: JP-SANOFI-AVENTIS-200912938JP

PATIENT
  Age: 83 Year
  Sex: Female
  Weight: 48.8 kg

DRUGS (11)
  1. INSULIN GLARGINE [Suspect]
     Indication: TYPE 2 DIABETES MELLITUS
     Dosage: DOSE:28 UNIT(S)
     Route: 058
     Dates: start: 20050805
  2. ASPIRIN [Concomitant]
  3. TAKEPRON [Concomitant]
  4. ARTIST [Concomitant]
  5. DORNER [Concomitant]
  6. ANPLAG [Concomitant]
  7. BIOFERMIN R [Concomitant]
     Route: 048
  8. MUCOSTA [Concomitant]
  9. TORASEMIDE [Concomitant]
  10. ALDACTONE [Concomitant]
  11. LASIX [Concomitant]

REACTIONS (2)
  - DIARRHOEA [None]
  - VOMITING [None]
